FAERS Safety Report 9796024 (Version 3)
Quarter: 2015Q3

REPORT INFORMATION
  Report Type: Spontaneous
  Country: US (occurrence: US)
  Receive Date: 20140103
  Receipt Date: 20150721
  Transmission Date: 20151125
  Serious: No
  Sender: FDA-Public Use
  Company Number: US-GILEAD-2010-0032284

PATIENT
  Age: 21 Year
  Sex: Male

DRUGS (21)
  1. AZITHROMYCIN [Concomitant]
     Active Substance: AZITHROMYCIN ANHYDROUS
     Dates: start: 20060419
  2. SOURCE ABDEK [Concomitant]
     Dates: start: 20100920
  3. XOLAIR [Concomitant]
     Active Substance: OMALIZUMAB
     Dates: start: 20061117
  4. ACYCLOVIR. [Concomitant]
     Active Substance: ACYCLOVIR
     Dates: start: 20100710
  5. URSODIOL. [Concomitant]
     Active Substance: URSODIOL
     Dates: start: 20040727
  6. PULMOZYME [Concomitant]
     Active Substance: DORNASE ALFA
     Dates: start: 20040727
  7. TOBI [Concomitant]
     Active Substance: TOBRAMYCIN
     Dates: start: 20050711
  8. PANCREAZE [Concomitant]
     Active Substance: PANCRELIPASE
     Dates: start: 20100903
  9. SODIUM CHLORIDE. [Concomitant]
     Active Substance: SODIUM CHLORIDE
     Dates: start: 20101001
  10. ADDERALL XR [Concomitant]
     Active Substance: AMPHETAMINE ASPARTATE\AMPHETAMINE SULFATE\DEXTROAMPHETAMINE SACCHARATE\DEXTROAMPHETAMINE SULFATE
     Dates: start: 20040727
  11. PREVACID [Concomitant]
     Active Substance: LANSOPRAZOLE
     Dates: start: 20050601
  12. CAYSTON [Suspect]
     Active Substance: AZTREONAM
     Indication: CYSTIC FIBROSIS
     Dates: start: 20100915, end: 20100922
  13. ALBUTEROL. [Concomitant]
     Active Substance: ALBUTEROL
  14. ADVAIR DISKUS [Concomitant]
     Active Substance: FLUTICASONE PROPIONATE\SALMETEROL XINAFOATE
     Dates: start: 20080318
  15. ERGOCALCIFEROL. [Concomitant]
     Active Substance: ERGOCALCIFEROL
     Dates: start: 20061017
  16. CALCIUM + D [Concomitant]
     Active Substance: CALCIUM\VITAMIN D
     Dates: start: 20050711
  17. LEVAQUIN [Concomitant]
     Active Substance: LEVOFLOXACIN
     Dates: start: 20100930
  18. SPORANOX [Concomitant]
     Active Substance: ITRACONAZOLE\SODIUM CHLORIDE
     Dates: start: 20101001
  19. HYPERSAL [Concomitant]
     Dates: start: 20090306
  20. SINGULAIR [Concomitant]
     Active Substance: MONTELUKAST SODIUM
     Dates: start: 20050711
  21. PROAIR HFA [Concomitant]
     Active Substance: ALBUTEROL SULFATE
     Dates: start: 20080928

REACTIONS (2)
  - Haemoptysis [Recovered/Resolved]
  - Cough [Recovered/Resolved]

NARRATIVE: CASE EVENT DATE: 20100915
